FAERS Safety Report 5263814-4 (Version None)
Quarter: 2007Q1

REPORT INFORMATION
  Report Type: 
  Country: None (occurrence: None)
  Receive Date: 20070313
  Receipt Date: 20070309
  Transmission Date: 20070707
  Serious: Yes (Other)
  Sender: FDA-Public Use
  Company Number: US-GLAXOSMITHKLINE-A0642627A

PATIENT
  Age: 62 Year
  Sex: Female

DRUGS (11)
  1. ADVAIR DISKUS 100/50 [Suspect]
     Indication: CHRONIC OBSTRUCTIVE PULMONARY DISEASE
     Dosage: 1PUFF TWICE PER DAY
     Route: 055
  2. COREG [Concomitant]
  3. ALTACE [Concomitant]
  4. COUMADIN [Concomitant]
  5. FUROSEMIDE [Concomitant]
  6. POTASSIUM ACETATE [Concomitant]
  7. MAG-OX [Concomitant]
  8. ZAROXOLYN [Concomitant]
  9. FLORICAL [Concomitant]
  10. ALPRAZOLAM [Concomitant]
  11. COMBIVENT [Concomitant]

REACTIONS (5)
  - CATARACT [None]
  - DRUG INEFFECTIVE [None]
  - EYE HAEMORRHAGE [None]
  - EYE PAIN [None]
  - EYELID OEDEMA [None]
